FAERS Safety Report 5229165-9 (Version None)
Quarter: 2007Q1

REPORT INFORMATION
  Report Type: 
  Country: None (occurrence: None)
  Receive Date: 20070205
  Receipt Date: 20070129
  Transmission Date: 20070707
  Serious: Yes (Death)
  Sender: FDA-Public Use
  Company Number: US-BOEHRINGER INGELHEIM GMBH, GERMANY-2007-DE-00555GD

PATIENT
  Age: 6 Month
  Sex: Female

DRUGS (4)
  1. DEXTROMETHORPHAN HYDROBROMIDE [Suspect]
  2. ACETAMINOPHEN [Suspect]
  3. PSEUDOEPHEDRINE HCL [Suspect]
  4. CARBINOXAMINE MALEATE [Suspect]

REACTIONS (1)
  - DRUG TOXICITY [None]
